FAERS Safety Report 18051425 (Version 1)
Quarter: 2020Q3

REPORT INFORMATION
  Report Type: Report from Study
  Country: BE (occurrence: BE)
  Receive Date: 20200721
  Receipt Date: 20200721
  Transmission Date: 20201103
  Serious: Yes (Hospitalization)
  Sender: FDA-Public Use
  Company Number: NVSC2020BE201839

PATIENT
  Sex: Male

DRUGS (3)
  1. SANDOSTATINE LAR [Suspect]
     Active Substance: OCTREOTIDE ACETATE
     Indication: SHORT-BOWEL SYNDROME
     Dosage: 30 MG (INCLUSION DATE PROGRAM 24 JAN 2018)
     Route: 030
  2. SANDOSTATINE LAR [Suspect]
     Active Substance: OCTREOTIDE ACETATE
  3. SANDOSTATINE LAR [Suspect]
     Active Substance: OCTREOTIDE ACETATE

REACTIONS (2)
  - Disease progression [Unknown]
  - Product use in unapproved indication [Unknown]

NARRATIVE: CASE EVENT DATE: 20200703
